FAERS Safety Report 23794588 (Version 3)
Quarter: 2024Q3

REPORT INFORMATION
  Report Type: Spontaneous
  Country: AR (occurrence: AR)
  Receive Date: 20240429
  Receipt Date: 20240702
  Transmission Date: 20241016
  Serious: No
  Sender: PFIZER
  Company Number: AR-PFIZER INC-202400091652

PATIENT
  Age: 52 Year
  Sex: Female

DRUGS (1)
  1. ENBREL [Suspect]
     Active Substance: BENZYL ALCOHOL\ETANERCEPT
     Indication: Psoriatic arthropathy
     Dosage: 50 MG, WEEKLY
     Dates: start: 20150902, end: 20230301

REACTIONS (2)
  - Condition aggravated [Not Recovered/Not Resolved]
  - Injection site pain [Not Recovered/Not Resolved]

NARRATIVE: CASE EVENT DATE: 20230301
